FAERS Safety Report 22347921 (Version 1)
Quarter: 2023Q2

REPORT INFORMATION
  Report Type: Report from Study
  Country: GB (occurrence: GB)
  Receive Date: 20230522
  Receipt Date: 20230522
  Transmission Date: 20230722
  Serious: Yes (Other)
  Sender: FDA-Public Use
  Company Number: GB-IPSEN Group, Research and Development-2023-07210

PATIENT
  Age: 58 Year
  Sex: Male

DRUGS (12)
  1. LANREOTIDE ACETATE [Suspect]
     Active Substance: LANREOTIDE ACETATE
     Indication: Acromegaly
     Route: 058
     Dates: start: 20221012
  2. LANREOTIDE ACETATE [Suspect]
     Active Substance: LANREOTIDE ACETATE
     Route: 058
     Dates: start: 20230207
  3. LANREOTIDE ACETATE [Suspect]
     Active Substance: LANREOTIDE ACETATE
     Route: 058
  4. BUSPIRONE [Concomitant]
     Active Substance: BUSPIRONE HYDROCHLORIDE
  5. OMEPRAZOLE [Concomitant]
     Active Substance: OMEPRAZOLE
  6. UNSPECIFIED INGREDIENT [Concomitant]
     Active Substance: UNSPECIFIED INGREDIENT
  7. COPD INHALER [Concomitant]
  8. FYBOGEL [Concomitant]
     Active Substance: HERBALS\PLANTAGO OVATA SEED
  9. DIAZEPAM [Concomitant]
     Active Substance: DIAZEPAM
  10. GLYCERIN [Concomitant]
     Active Substance: GLYCERIN
     Dosage: SPRAY
  11. BECEFOL [Concomitant]
  12. CODEINE [Concomitant]
     Active Substance: CODEINE

REACTIONS (8)
  - Mental impairment [Unknown]
  - Abdominal pain upper [Unknown]
  - Dizziness [Unknown]
  - Haemoptysis [Unknown]
  - Chest pain [Unknown]
  - Abdominal pain [Unknown]
  - Diarrhoea [Unknown]
  - Flatulence [Unknown]
